FAERS Safety Report 5637260-5 (Version None)
Quarter: 2008Q1

REPORT INFORMATION
  Report Type: 
  Country: None (occurrence: None)
  Receive Date: 20080225
  Receipt Date: 20070928
  Transmission Date: 20080703
  Serious: No
  Sender: FDA-Public Use
  Company Number: US-BRISTOL-MYERS SQUIBB COMPANY-13923966

PATIENT
  Age: 55 Year
  Sex: Female
  Weight: 42 kg

DRUGS (4)
  1. KENALOG [Suspect]
     Indication: SEASONAL ALLERGY
     Dates: start: 20070924
  2. FOSAMAX [Concomitant]
  3. RED YEAST RICE [Concomitant]
  4. CALCIUM [Concomitant]

REACTIONS (3)
  - ABDOMINAL PAIN UPPER [None]
  - HEADACHE [None]
  - HYPERHIDROSIS [None]
